FAERS Safety Report 25041695 (Version 1)
Quarter: 2025Q1

REPORT INFORMATION
  Report Type: Spontaneous
  Country: FR (occurrence: FR)
  Receive Date: 20250305
  Receipt Date: 20250305
  Transmission Date: 20250409
  Serious: Yes (Other)
  Sender: MYLAN
  Company Number: FR-MYLANLABS-2025M1018399

PATIENT
  Age: 14 Year
  Sex: Female

DRUGS (5)
  1. ETOPOSIDE [Suspect]
     Active Substance: ETOPOSIDE
     Indication: Medulloblastoma
     Dosage: 25 MILLIGRAM/SQ. METER, QD (25 MG/M2/DOSE)
  2. CARBOPLATIN [Suspect]
     Active Substance: CARBOPLATIN
     Indication: Medulloblastoma
  3. ETOPOSIDE [Suspect]
     Active Substance: ETOPOSIDE
     Indication: Medulloblastoma
  4. AXITINIB [Suspect]
     Active Substance: AXITINIB
     Indication: Medulloblastoma
     Dosage: 1.2 MILLIGRAM/SQ. METER, BID (1.2 MG/M2/DOSE)
  5. THIOTEPA [Suspect]
     Active Substance: THIOTEPA
     Indication: Medulloblastoma

REACTIONS (8)
  - Hypothyroidism [Unknown]
  - Fatigue [Unknown]
  - Diarrhoea [Unknown]
  - Anaemia [Unknown]
  - Thrombocytopenia [Unknown]
  - Off label use [Unknown]
  - Drug ineffective [Unknown]
  - Hypertension [Unknown]
